FAERS Safety Report 8802793 (Version 2)
Quarter: 2013Q1

REPORT INFORMATION
  Report Type: Spontaneous
  Country: US (occurrence: US)
  Receive Date: 20120921
  Receipt Date: 20130123
  Transmission Date: 20140127
  Serious: Yes (Hospitalization, Other)
  Sender: FDA-Public Use
  Company Number: US-ASTRAZENECA-2012SE71705

PATIENT
  Age: 70 Year
  Sex: Female
  Weight: 82.6 kg

DRUGS (19)
  1. NEXIUM [Suspect]
     Indication: HIATUS HERNIA
     Route: 048
     Dates: start: 2006
  2. NEXIUM [Suspect]
     Indication: BARRETT^S OESOPHAGUS
     Route: 048
     Dates: start: 2006
  3. NEXIUM [Suspect]
     Indication: GASTROOESOPHAGEAL REFLUX DISEASE
     Route: 048
     Dates: start: 2006
  4. NEXIUM [Suspect]
     Indication: HIATUS HERNIA
     Route: 048
     Dates: start: 2010
  5. NEXIUM [Suspect]
     Indication: BARRETT^S OESOPHAGUS
     Route: 048
     Dates: start: 2010
  6. NEXIUM [Suspect]
     Indication: GASTROOESOPHAGEAL REFLUX DISEASE
     Route: 048
     Dates: start: 2010
  7. NEXIUM [Suspect]
     Indication: HIATUS HERNIA
     Route: 048
     Dates: end: 2012
  8. NEXIUM [Suspect]
     Indication: BARRETT^S OESOPHAGUS
     Route: 048
     Dates: end: 2012
  9. NEXIUM [Suspect]
     Indication: GASTROOESOPHAGEAL REFLUX DISEASE
     Route: 048
     Dates: end: 2012
  10. NEXIUM [Suspect]
     Indication: HIATUS HERNIA
     Route: 048
  11. NEXIUM [Suspect]
     Indication: BARRETT^S OESOPHAGUS
     Route: 048
  12. NEXIUM [Suspect]
     Indication: GASTROOESOPHAGEAL REFLUX DISEASE
     Route: 048
  13. NEXIUM [Suspect]
     Indication: HIATUS HERNIA
     Dosage: DAILY
     Route: 048
     Dates: start: 2007
  14. NEXIUM [Suspect]
     Indication: BARRETT^S OESOPHAGUS
     Dosage: DAILY
     Route: 048
     Dates: start: 2007
  15. NEXIUM [Suspect]
     Indication: GASTROOESOPHAGEAL REFLUX DISEASE
     Dosage: DAILY
     Route: 048
     Dates: start: 2007
  16. OMEPRAZOLE [Suspect]
     Route: 048
  17. LEVOTHYROXINE [Concomitant]
  18. SIMVASTATIN [Concomitant]
  19. PRISTIQ [Concomitant]

REACTIONS (6)
  - Barrett^s oesophagus [Unknown]
  - Off label use [Unknown]
  - Oesophageal haemorrhage [Unknown]
  - Gastrooesophageal reflux disease [Recovered/Resolved]
  - Haematemesis [Recovered/Resolved]
  - Hyperchlorhydria [Unknown]
